FAERS Safety Report 16563377 (Version 2)
Quarter: 2019Q3

REPORT INFORMATION
  Report Type: Spontaneous
  Country: JP (occurrence: JP)
  Receive Date: 20190712
  Receipt Date: 20190801
  Transmission Date: 20191004
  Serious: No
  Sender: FDA-Public Use
  Company Number: JP-ASTRAZENECA-2019SE62512

PATIENT
  Age: 80 Year
  Sex: Female

DRUGS (1)
  1. FASENRA [Suspect]
     Active Substance: BENRALIZUMAB
     Indication: ASTHMA
     Dosage: DOSE UNKNOWN
     Route: 058

REACTIONS (1)
  - No adverse event [Unknown]
